FAERS Safety Report 12745645 (Version 1)
Quarter: 2016Q3

REPORT INFORMATION
  Report Type: Report from Study
  Country: US (occurrence: US)
  Receive Date: 20160915
  Receipt Date: 20160915
  Transmission Date: 20161109
  Serious: Yes (Other)
  Sender: FDA-Public Use
  Company Number: US-ROCHE-1828653

PATIENT
  Age: 56 Year
  Sex: Female
  Weight: 92.1 kg

DRUGS (2)
  1. BEVACIZUMAB [Suspect]
     Active Substance: BEVACIZUMAB
     Indication: MALIGNANT NEOPLASM OF ISLETS OF LANGERHANS
     Dosage: COURSE 1
     Route: 042
     Dates: start: 20091231, end: 20111117
  2. TEMSIROLIMUS [Suspect]
     Active Substance: TEMSIROLIMUS
     Indication: MALIGNANT NEOPLASM OF ISLETS OF LANGERHANS
     Dosage: COURSE 1
     Route: 042
     Dates: start: 20091231, end: 20111117

REACTIONS (11)
  - Hypertriglyceridaemia [Unknown]
  - Dehydration [Unknown]
  - Nausea [Unknown]
  - Vomiting [Unknown]
  - Atrial tachycardia [Unknown]
  - Rash maculo-papular [Unknown]
  - Upper gastrointestinal haemorrhage [Unknown]
  - Lower gastrointestinal haemorrhage [Unknown]
  - Neutrophil count decreased [Unknown]
  - Aspartate aminotransferase increased [Unknown]
  - Fatigue [Unknown]
